FAERS Safety Report 23800310 (Version 1)
Quarter: 2024Q2

REPORT INFORMATION
  Report Type: Spontaneous
  Country: BY (occurrence: BY)
  Receive Date: 20240430
  Receipt Date: 20240430
  Transmission Date: 20240716
  Serious: Yes (Other)
  Sender: FDA-Public Use
  Company Number: BY-002147023-NVSC2024BY088196

PATIENT
  Sex: Male
  Weight: 72 kg

DRUGS (9)
  1. INCLISIRAN [Suspect]
     Active Substance: INCLISIRAN
     Indication: Coronary artery disease
     Dosage: 300 MG (IN 1.5 ML)
     Route: 058
     Dates: start: 20230324
  2. INCLISIRAN [Suspect]
     Active Substance: INCLISIRAN
     Indication: Arteriosclerosis
     Dosage: 300 MG (IN 1.5 ML)
     Route: 058
     Dates: start: 20230728
  3. INCLISIRAN [Suspect]
     Active Substance: INCLISIRAN
     Indication: Diabetes mellitus
     Dosage: 300 MG (IN 1.5 ML)
     Route: 058
     Dates: start: 20240208
  4. INCLISIRAN [Suspect]
     Active Substance: INCLISIRAN
     Indication: Proctectomy
  5. ROSUVASTATIN [Concomitant]
     Active Substance: ROSUVASTATIN
     Indication: Product used for unknown indication
     Dosage: 20 MG
     Route: 065
  6. LERCANIDIPINE HYDROCHLORIDE [Concomitant]
     Active Substance: LERCANIDIPINE HYDROCHLORIDE
     Indication: Product used for unknown indication
     Dosage: 10 MG
     Route: 065
  7. CARDIOMAGNYL [Concomitant]
     Active Substance: ASPIRIN\MAGNESIUM HYDROXIDE
     Indication: Product used for unknown indication
     Dosage: 75 MG
     Route: 065
  8. LOSARTAN [Concomitant]
     Active Substance: LOSARTAN
     Indication: Product used for unknown indication
     Dosage: 100 MG
     Route: 065
  9. NEBIVOLOL [Concomitant]
     Active Substance: NEBIVOLOL
     Indication: Product used for unknown indication
     Dosage: 2.5 MG
     Route: 065

REACTIONS (1)
  - Drug level decreased [Not Recovered/Not Resolved]
